FAERS Safety Report 7435986 (Version 4)
Quarter: 2013Q1

REPORT INFORMATION
  Report Type: Spontaneous
  Country: US (occurrence: US)
  Receive Date: 20100625
  Receipt Date: 20130311
  Transmission Date: 20140127
  Serious: Yes (Hospitalization, Other)
  Sender: FDA-Public Use
  Company Number: US-BAYER-201025730NA

PATIENT
  Age: 19 Year
  Sex: Female
  Weight: 89.79 kg

DRUGS (15)
  1. YAZ [Suspect]
     Indication: CONTRACEPTION
     Dosage: UNK UNK, UNK
     Route: 048
     Dates: start: 200701, end: 200706
  2. PHENYTOIN [Concomitant]
     Indication: PRODUCT USED FOR UNKNOWN INDICATION
     Dosage: UNK
     Dates: start: 20070618
  3. POTASSIUM ACETATE [Concomitant]
     Indication: SUPPLEMENTATION THERAPY
     Dosage: UNK
     Dates: start: 20070621
  4. WARFARIN [Concomitant]
     Indication: ANTIPHOSPHOLIPID SYNDROME
     Dosage: UNK
     Dates: start: 200606
  5. PROTONIX [Concomitant]
     Indication: PRODUCT USED FOR UNKNOWN INDICATION
     Dosage: UNK
     Dates: start: 200706, end: 200803
  6. ATIVAN [Concomitant]
     Indication: SLEEP DISORDER
     Dosage: UNK
     Dates: start: 200706, end: 200708
  7. ATIVAN [Concomitant]
     Indication: ANXIETY
  8. TYLENOL [PARACETAMOL] [Concomitant]
     Indication: HEADACHE
     Dosage: 250 MG, QID
     Dates: start: 20070603, end: 20070607
  9. FIORICET [Concomitant]
     Indication: HEADACHE
     Dosage: UNK UNK, Q3HR
     Dates: start: 20070605, end: 20070609
  10. DILAUDID [Concomitant]
     Indication: HEADACHE
     Dosage: UNK
     Dates: start: 20070610, end: 20070627
  11. PHENERGAN [PROMETHAZINE] [Concomitant]
     Indication: NAUSEA
     Dosage: UNK UNK, Q4HR
     Dates: start: 20070610, end: 20070627
  12. PHENERGAN [PROMETHAZINE] [Concomitant]
     Indication: VOMITING
  13. HYDROCODONE/ACETAMINOPHEN [Concomitant]
  14. MEPROZINE [Concomitant]
  15. DURADRIN [Concomitant]

REACTIONS (13)
  - Superior sagittal sinus thrombosis [None]
  - Thalamic infarction [None]
  - Convulsion [None]
  - VIth nerve paralysis [None]
  - Optic nerve injury [None]
  - Hemiparesis [None]
  - Gait disturbance [None]
  - Muscle atrophy [None]
  - Headache [None]
  - Memory impairment [None]
  - Disturbance in attention [None]
  - Dyspnoea [None]
  - Central nervous system lesion [None]
